FAERS Safety Report 17916606 (Version 4)
Quarter: 2021Q1

REPORT INFORMATION
  Report Type: Spontaneous
  Country: NL (occurrence: DE)
  Receive Date: 20200619
  Receipt Date: 20210302
  Transmission Date: 20210419
  Serious: Yes (Death, Hospitalization, Other)
  Sender: FDA-Public Use
  Company Number: DE-FRESENIUS KABI-FK201912475

PATIENT
  Age: 55 Year
  Sex: Female

DRUGS (46)
  1. CARBOPLATIN (MANUFACTURER UNKNOWN) [Suspect]
     Active Substance: CARBOPLATIN
     Indication: NON-SMALL CELL LUNG CANCER METASTATIC
     Dosage: FIRST?LINE THERAPY
     Route: 065
  2. DOCETAXEL. [Suspect]
     Active Substance: DOCETAXEL
     Indication: PRODUCT USED FOR UNKNOWN INDICATION
     Dosage: 75MG/M2, D1, EVERY 3 WEEKS; SECOND CYCLE
     Route: 065
     Dates: start: 20191007, end: 20191007
  3. PEMBROLIZUMAB. [Suspect]
     Active Substance: PEMBROLIZUMAB
     Indication: NON-SMALL CELL LUNG CANCER METASTATIC
     Dosage: FIRST?LINE THERAPY
     Route: 065
  4. PEMETREXED DISODIUM [Suspect]
     Active Substance: PEMETREXED DISODIUM
     Indication: PRODUCT USED FOR UNKNOWN INDICATION
     Dosage: 500 MILLIGRAM/SQ. METEREVERY 3 WEEKS ;SECOND?LINE THERAP; SECOND CYCLE
     Route: 065
     Dates: start: 20190523, end: 20190523
  5. NINTEDANIB [Suspect]
     Active Substance: NINTEDANIB
     Dosage: 100MG, TWO, TWICE DAILY ORAL FROM DAY 2 UNTIL DAY 21, EVERY 3 WEEKS;FIRST CYCLE
     Route: 048
     Dates: start: 20190912, end: 20190912
  6. NINTEDANIB ESILATE [Suspect]
     Active Substance: NINTEDANIB ESYLATE
     Indication: NON-SMALL CELL LUNG CANCER METASTATIC
     Dosage: 100MG, TWO, TWICE DAILY ORAL FROM DAY 2 UNTIL DAY 21, EVERY 3 WEEKS; THIRD CYCLE
     Route: 048
     Dates: start: 20191028, end: 20191028
  7. DOCETAXEL. [Suspect]
     Active Substance: DOCETAXEL
     Dosage: 4?6TH CYCLE
     Route: 065
     Dates: start: 20191119, end: 20200102
  8. DOCETAXEL. [Suspect]
     Active Substance: DOCETAXEL
     Dosage: 13TH CYCLE
     Route: 065
     Dates: start: 20200526, end: 20200526
  9. PEMBROLIZUMAB. [Suspect]
     Active Substance: PEMBROLIZUMAB
     Dosage: 200 MILLIGRAM, EVERY 3 WEEKS; FIRST CYCLE
     Route: 065
     Dates: start: 20190502, end: 20190502
  10. PEMETREXED DISODIUM [Suspect]
     Active Substance: PEMETREXED DISODIUM
     Indication: NON-SMALL CELL LUNG CANCER METASTATIC
     Dosage: FIRST?LINE THERAPY
     Route: 065
  11. PEMETREXED DISODIUM [Suspect]
     Active Substance: PEMETREXED DISODIUM
     Dosage: 500 MILLIGRAM/SQ. METEREVERY 3 WEEKS ;SECOND?LINE THERAPY; THIRD CYCLE
     Route: 065
     Dates: start: 20190613, end: 20190613
  12. PEMETREXED DISODIUM [Suspect]
     Active Substance: PEMETREXED DISODIUM
     Dosage: 500 MILLIGRAM/SQ. METEREVERY 3 WEEKS ;2 CYCLES, SECOND?LINE THERAP; FIFTH CYCLE
     Route: 065
     Dates: start: 20190725, end: 20190725
  13. PEMETREXED DISODIUM [Suspect]
     Active Substance: PEMETREXED DISODIUM
     Dosage: 500 MILLIGRAM/SQ. METEREVERY 3 WEEKS ;2 CYCLES, SECOND?LINE THERAP; FORTH CYCLE
     Route: 065
     Dates: start: 20190704, end: 20190704
  14. NINTEDANIB [Suspect]
     Active Substance: NINTEDANIB
     Indication: NON-SMALL CELL LUNG CANCER METASTATIC
     Dosage: 2 CYCLES, SECOND?LINE THERAPY
     Route: 065
     Dates: start: 20180123, end: 20180213
  15. NINTEDANIB [Suspect]
     Active Substance: NINTEDANIB
     Indication: PRODUCT USED FOR UNKNOWN INDICATION
     Dosage: SECOND?LINE THERAPY
     Route: 065
     Dates: start: 20190912, end: 20191007
  16. CARBOPLATIN (MANUFACTURER UNKNOWN) [Suspect]
     Active Substance: CARBOPLATIN
     Dosage: FIRST?LINE THERAPY; AUC5, ON DAY1, EVERY 3 WEEKS; SIXTH CYCLE
     Route: 065
     Dates: start: 20190822, end: 20190822
  17. DOCETAXEL. [Suspect]
     Active Substance: DOCETAXEL
     Dosage: 10?12TH CYCLE
     Route: 065
     Dates: start: 20200326, end: 20200507
  18. PEMBROLIZUMAB. [Suspect]
     Active Substance: PEMBROLIZUMAB
     Dosage: 200 MILLIGRAM, EVERY 3 WEEKS; SIXTH CYCLE
     Route: 065
     Dates: start: 20190822, end: 20190822
  19. PEMETREXED DISODIUM [Suspect]
     Active Substance: PEMETREXED DISODIUM
     Indication: LUNG NEOPLASM MALIGNANT
     Dosage: 500 MILLIGRAM/SQ. METEREVERY 3 WEEKS ;SECOND?LINE THERAP; FIRST CYCLE
     Route: 065
     Dates: start: 20190502
  20. NINTEDANIB ESILATE [Suspect]
     Active Substance: NINTEDANIB ESYLATE
     Indication: LUNG NEOPLASM MALIGNANT
     Dosage: 100MG, TWO, TWICE DAILY ORAL FROM DAY 2 UNTIL DAY 21, EVERY 3 WEEKS;FIRST CYCLE
     Route: 048
     Dates: start: 20190912, end: 20190912
  21. NINTEDANIB [Suspect]
     Active Substance: NINTEDANIB
     Dosage: 10?12TH CYCLE
     Route: 065
     Dates: start: 20200326, end: 20200507
  22. NINTEDANIB [Suspect]
     Active Substance: NINTEDANIB
     Dosage: 7?9TH CYCLE
     Route: 065
     Dates: start: 20200123, end: 20200305
  23. NINTEDANIB ESILATE [Suspect]
     Active Substance: NINTEDANIB ESYLATE
     Dosage: 100MG, TWO, TWICE DAILY ORAL FROM DAY 2 UNTIL DAY 21, EVERY 3 WEEKS;
     Route: 048
     Dates: start: 20200326, end: 20200507
  24. NINTEDANIB ESILATE [Suspect]
     Active Substance: NINTEDANIB ESYLATE
     Dosage: 7?9TH CYCLE
     Route: 065
     Dates: start: 20200123, end: 20200305
  25. NINTEDANIB ESILATE [Suspect]
     Active Substance: NINTEDANIB ESYLATE
     Dosage: 13TH CYCLE
     Route: 065
     Dates: start: 20200526, end: 20200526
  26. CARBOPLATIN (MANUFACTURER UNKNOWN) [Suspect]
     Active Substance: CARBOPLATIN
     Indication: PRODUCT USED FOR UNKNOWN INDICATION
     Dosage: FIRST?LINE THERAPY; AUC5, ON DAY1, EVERY 3 WEEKS; FIRST CYCLE
     Route: 065
     Dates: start: 20190502, end: 20190502
  27. CARBOPLATIN (MANUFACTURER UNKNOWN) [Suspect]
     Active Substance: CARBOPLATIN
     Indication: LUNG NEOPLASM MALIGNANT
     Dosage: FIRST?LINE THERAPY; AUC5, ON DAY1, EVERY 3 WEEKS; FORTH CYCLE
     Route: 065
     Dates: start: 20190704, end: 20190704
  28. DOCETAXEL. [Suspect]
     Active Substance: DOCETAXEL
     Dosage: 75MG/M2, D1, EVERY 3 WEEKS; FIRST CYCLE
     Route: 065
     Dates: start: 20190912, end: 20190912
  29. PEMBROLIZUMAB. [Suspect]
     Active Substance: PEMBROLIZUMAB
     Indication: PRODUCT USED FOR UNKNOWN INDICATION
     Dosage: 200 MILLIGRAM, EVERY 3 WEEKS; SECOND CYCLE
     Route: 065
     Dates: start: 20190523, end: 20190523
  30. NINTEDANIB [Suspect]
     Active Substance: NINTEDANIB
     Dosage: 4?6TH CYCLE
     Route: 065
     Dates: start: 20191119, end: 20200102
  31. NINTEDANIB ESILATE [Suspect]
     Active Substance: NINTEDANIB ESYLATE
     Indication: PRODUCT USED FOR UNKNOWN INDICATION
     Dosage: 100MG, TWO, TWICE DAILY ORAL FROM DAY 2 UNTIL DAY 21, EVERY 3 WEEKS; SECOND CYCLE
     Route: 048
     Dates: start: 20191007, end: 20191007
  32. NINTEDANIB ESILATE [Suspect]
     Active Substance: NINTEDANIB ESYLATE
     Dosage: 4?6TH CYCLE
     Route: 065
     Dates: start: 20191119, end: 20200102
  33. CARBOPLATIN (MANUFACTURER UNKNOWN) [Suspect]
     Active Substance: CARBOPLATIN
     Dosage: FIRST?LINE THERAPY; AUC5, ON DAY1, EVERY 3 WEEKS; THIRD CYCLE
     Route: 065
     Dates: start: 20190613, end: 20190613
  34. CARBOPLATIN (MANUFACTURER UNKNOWN) [Suspect]
     Active Substance: CARBOPLATIN
     Dosage: FIRST?LINE THERAPY; AUC5, ON DAY1, EVERY 3 WEEKS; FIFTH CYCLE
     Route: 065
     Dates: start: 20190725, end: 20190725
  35. DOCETAXEL. [Suspect]
     Active Substance: DOCETAXEL
     Indication: LUNG NEOPLASM MALIGNANT
     Dosage: 2 CYCLES, SECOND?LINE THERAPY
     Route: 065
     Dates: start: 20180123, end: 20180213
  36. DOCETAXEL. [Suspect]
     Active Substance: DOCETAXEL
     Dosage: 75MG/M2, D1, EVERY 3 WEEKS; THIRD CYCLE
     Route: 065
     Dates: start: 20191028, end: 20191028
  37. PEMBROLIZUMAB. [Suspect]
     Active Substance: PEMBROLIZUMAB
     Dosage: 200 MILLIGRAM, EVERY 3 WEEKS; THIRD CYCLE
     Dates: start: 20190613, end: 20190613
  38. PEMETREXED DISODIUM [Suspect]
     Active Substance: PEMETREXED DISODIUM
     Dosage: 500 MILLIGRAM/SQ. METEREVERY 3 WEEKS ;2 CYCLES, SECOND?LINE THERAP; SIXTH CYCLE
     Route: 065
     Dates: start: 20190822, end: 20190822
  39. NINTEDANIB [Suspect]
     Active Substance: NINTEDANIB
     Dosage: 100MG, TWO, TWICE DAILY ORAL FROM DAY 2 UNTIL DAY 21, EVERY 3 WEEKS; SECOND CYCLE
     Route: 048
     Dates: start: 20191007, end: 20191007
  40. CARBOPLATIN (MANUFACTURER UNKNOWN) [Suspect]
     Active Substance: CARBOPLATIN
     Dosage: FIRST?LINE THERAPY; AUC5, ON DAY1, EVERY 3 WEEKS; SECOND CYCLE
     Route: 065
     Dates: start: 20190523, end: 20190523
  41. DOCETAXEL. [Suspect]
     Active Substance: DOCETAXEL
     Dosage: 7?9TH CYCLE
     Route: 065
     Dates: start: 20200123, end: 20200305
  42. NINTEDANIB [Suspect]
     Active Substance: NINTEDANIB
     Indication: LUNG NEOPLASM MALIGNANT
     Dosage: 100MG, TWO, TWICE DAILY ORAL FROM DAY 2 UNTIL DAY 21, EVERY 3 WEEKS; THIRD CYCLE
     Route: 048
     Dates: start: 20191028, end: 20191028
  43. DOCETAXEL. [Suspect]
     Active Substance: DOCETAXEL
     Indication: NON-SMALL CELL LUNG CANCER METASTATIC
     Dosage: SECOND?LINE THERAPY
     Route: 065
     Dates: start: 20190912, end: 20191007
  44. PEMBROLIZUMAB. [Suspect]
     Active Substance: PEMBROLIZUMAB
     Indication: LUNG NEOPLASM MALIGNANT
     Dosage: 200 MILLIGRAM, EVERY 3 WEEKS; FORTH CYCLE
     Route: 065
     Dates: start: 20190704, end: 20190704
  45. PEMBROLIZUMAB. [Suspect]
     Active Substance: PEMBROLIZUMAB
     Dosage: 200 MILLIGRAM, EVERY 3 WEEKS; FIFTH CYCLE
     Route: 065
     Dates: start: 20190725, end: 20190725
  46. NINTEDANIB [Suspect]
     Active Substance: NINTEDANIB
     Dosage: 13TH CYCLE
     Route: 065
     Dates: start: 20200526, end: 20200526

REACTIONS (11)
  - Neuropathy peripheral [Unknown]
  - Febrile neutropenia [Unknown]
  - Inappropriate schedule of product administration [Unknown]
  - Diarrhoea [Unknown]
  - Pneumonitis [Unknown]
  - Venous thrombosis [Recovering/Resolving]
  - Malignant neoplasm progression [Unknown]
  - Malignant neoplasm progression [Unknown]
  - Diarrhoea [Unknown]
  - Malignant neoplasm progression [Fatal]
  - Nausea [Unknown]

NARRATIVE: CASE EVENT DATE: 2018
